FAERS Safety Report 9085695 (Version 3)
Quarter: 2013Q1

REPORT INFORMATION
  Report Type: Spontaneous
  Country: US (occurrence: US)
  Receive Date: 20130131
  Receipt Date: 20130311
  Transmission Date: 20140127
  Serious: Yes (Other)
  Sender: FDA-Public Use
  Company Number: US-GILEAD-2013-0068734

PATIENT
  Sex: Female

DRUGS (2)
  1. LETAIRIS [Suspect]
     Indication: PULMONARY HYPERTENSION
     Dosage: 10 MG, UNK
     Route: 048
     Dates: start: 20121026
  2. LETAIRIS [Suspect]
     Indication: SARCOIDOSIS

REACTIONS (3)
  - Weight decreased [Unknown]
  - Pollakiuria [Unknown]
  - Swelling [Unknown]
